FAERS Safety Report 17097952 (Version 1)
Quarter: 2019Q4

REPORT INFORMATION
  Report Type: Report from Study
  Country: US (occurrence: US)
  Receive Date: 20191202
  Receipt Date: 20191202
  Transmission Date: 20200122
  Serious: Yes (Death, Life-Threatening, Other)
  Sender: FDA-Public Use
  Company Number: US-BAYER-2019-209751

PATIENT
  Age: 74 Year
  Sex: Female

DRUGS (2)
  1. METFORMIN [Suspect]
     Active Substance: METFORMIN HYDROCHLORIDE
     Dosage: UNK
  2. ACETAMINOPHEN. [Suspect]
     Active Substance: ACETAMINOPHEN
     Dosage: UNK

REACTIONS (8)
  - Osmolar gap abnormal [None]
  - Anion gap abnormal [None]
  - Hypotension [None]
  - Electrocardiogram QT prolonged [None]
  - Toxicity to various agents [Fatal]
  - Delirium [None]
  - Metabolic acidosis [None]
  - Hepatotoxicity [None]
